FAERS Safety Report 13356496 (Version 1)
Quarter: 2017Q1

REPORT INFORMATION
  Report Type: Spontaneous
  Country: AU (occurrence: AU)
  Receive Date: 20170321
  Receipt Date: 20170321
  Transmission Date: 20170429
  Serious: Yes (Hospitalization)
  Sender: FDA-Public Use
  Company Number: AU-PFIZER INC-HQWYE950710OCT05

PATIENT
  Age: 28 Year
  Sex: Male

DRUGS (2)
  1. EFEXOR [Suspect]
     Active Substance: VENLAFAXINE HYDROCHLORIDE
     Dosage: 37.5 MG, 1X/DAY
  2. EFEXOR [Suspect]
     Active Substance: VENLAFAXINE HYDROCHLORIDE
     Dosage: GRADUAL WITHDRAWAL OF EFEXOR

REACTIONS (4)
  - Mania [Unknown]
  - Homicidal ideation [Unknown]
  - Drug withdrawal syndrome [Unknown]
  - Substance-induced psychotic disorder [Unknown]
